FAERS Safety Report 8268195 (Version 3)
Quarter: 2012Q4

REPORT INFORMATION
  Report Type: 
  Country: US (occurrence: US)
  Receive Date: 20111130
  Receipt Date: 20120904
  Transmission Date: 20130627
  Serious: No
  Sender: FDA-Public Use
  Company Number: US-PFIZER INC-2011243987

PATIENT
  Age: 51 Year
  Sex: Male
  Weight: 90.7 kg

DRUGS (8)
  1. ZALEPLON [Suspect]
     Indication: INSOMNIA
     Dosage: 10 mg, as needed
     Route: 048
     Dates: start: 20110816
  2. ZALEPLON [Suspect]
     Dosage: 10 mg, as needed
     Route: 048
  3. SONATA [Suspect]
     Indication: INSOMNIA
     Dosage: 10 mg, as needed
     Route: 048
  4. LEVOTHYROXINE [Concomitant]
     Dosage: 150 ug, every other day (QOD)
  5. LEVOTHYROXINE [Concomitant]
     Dosage: 175 ug, every other day (QOD)
  6. ADDERALL [Concomitant]
     Dosage: 5 mg, UNK
  7. CALCIUM [Concomitant]
     Dosage: UNK
  8. FISH OIL [Concomitant]
     Dosage: UNK

REACTIONS (1)
  - Drug ineffective [Unknown]
